FAERS Safety Report 9630963 (Version 1)
Quarter: 2013Q4

REPORT INFORMATION
  Report Type: Spontaneous
  Country: US (occurrence: None)
  Receive Date: 20131015
  Receipt Date: 20131015
  Transmission Date: 20140711
  Serious: Yes (Hospitalization)
  Sender: FDA-Public Use
  Company Number: AUR-APL-2013-08189

PATIENT
  Age: 16 Year
  Sex: Male

DRUGS (6)
  1. PIPERACILLIN+TAZOBACTAM [Suspect]
     Indication: NEUTROPENIA
  2. VANCOMYCIN [Concomitant]
  3. VORICONAZOLE [Concomitant]
  4. ETOPOSIDE [Concomitant]
  5. DAUNORUBICIN [Concomitant]
  6. CYTARABINE [Concomitant]

REACTIONS (10)
  - Nephropathy toxic [None]
  - Drug eruption [None]
  - Blood creatinine increased [None]
  - Staphylococcal infection [None]
  - Vomiting [None]
  - Hypotension [None]
  - Cytarabine syndrome [None]
  - Drug hypersensitivity [None]
  - Haemodialysis [None]
  - Tubulointerstitial nephritis [None]
